FAERS Safety Report 7009765-6 (Version None)
Quarter: 2010Q3

REPORT INFORMATION
  Report Type: 
  Country: None (occurrence: None)
  Receive Date: 20100903
  Receipt Date: 20090706
  Transmission Date: 20110219
  Serious: No
  Sender: FDA-Public Use
  Company Number: 2009-00390

PATIENT
  Age: 24 Year
  Sex: Male
  Weight: 113.3993 kg

DRUGS (1)
  1. ZICAM COLD REMEDY GEL SWABS [Suspect]
     Dosage: 5 MONGHT
     Dates: start: 20090101, end: 20090601

REACTIONS (2)
  - ANOSMIA [None]
  - HYPOSMIA [None]
